FAERS Safety Report 8832158 (Version 2)
Quarter: 2013Q2

REPORT INFORMATION
  Report Type: Spontaneous
  Country: US (occurrence: US)
  Receive Date: 20121009
  Receipt Date: 20130626
  Transmission Date: 20140414
  Serious: Yes (Other)
  Sender: FDA-Public Use
  Company Number: US-BAYER-2012-102019

PATIENT
  Age: 49 Year
  Sex: Female

DRUGS (2)
  1. CLIMARA PRO [Suspect]
     Indication: HOT FLUSH
     Dosage: UNK
     Route: 062
     Dates: start: 201209, end: 201211
  2. CLIMARA PRO [Suspect]
     Indication: MOOD SWINGS
     Dosage: UNK
     Dates: start: 20130619

REACTIONS (6)
  - Feeling hot [None]
  - Hyperhidrosis [None]
  - Product adhesion issue [None]
  - Dermal absorption impaired [None]
  - Postmenopausal haemorrhage [None]
  - Muscle spasms [None]
